FAERS Safety Report 4695671-9 (Version None)
Quarter: 2005Q2

REPORT INFORMATION
  Report Type: 
  Country: None (occurrence: None)
  Receive Date: 20050617
  Receipt Date: 20050617
  Transmission Date: 20051028
  Serious: Yes (Other)
  Sender: FDA-Public Use
  Company Number: None

PATIENT
  Age: 81 Year
  Sex: Female
  Weight: 63.5 kg

DRUGS (10)
  1. FLEXERIL [Suspect]
  2. OMEPRAZOLE [Concomitant]
  3. DOCUSATE SODIUM [Concomitant]
  4. ALBUTEROL [Concomitant]
  5. ACETAMINOPHEN [Concomitant]
  6. MENTHOL 10%/METHYL SALIC 15% [Concomitant]
  7. LISINOPRIL [Concomitant]
  8. FUROSEMIDE [Concomitant]
  9. CALCIUM/VITAMIN D [Concomitant]
  10. MILK OF MAGNESIA [Concomitant]

REACTIONS (1)
  - CONFUSIONAL STATE [None]
